FAERS Safety Report 9262919 (Version 1)
Quarter: 2013Q2

REPORT INFORMATION
  Report Type: Spontaneous
  Country: US (occurrence: US)
  Receive Date: 20130430
  Receipt Date: 20130430
  Transmission Date: 20140414
  Serious: Yes (Hospitalization)
  Sender: FDA-Public Use
  Company Number: US-BAYER-2013-052713

PATIENT
  Age: 46 Year
  Sex: Female

DRUGS (8)
  1. YASMIN [Suspect]
     Dosage: UNK
     Dates: start: 20010929, end: 20050310
  2. AMOXICILLIN [Concomitant]
     Dosage: 500 MG, UNK
     Route: 048
  3. NASACORT AQ [Concomitant]
     Dosage: UNK
     Route: 045
     Dates: start: 20050115
  4. ZOCOR [Concomitant]
     Dosage: 40 MG, UNK
     Route: 048
     Dates: start: 20050228
  5. ALLEGRA-D [Concomitant]
     Dosage: UNK UNK, PRN
     Route: 048
     Dates: start: 20050317
  6. ADVAIR [Concomitant]
     Dosage: 50/250 MCG, BID
     Route: 045
     Dates: start: 20050317
  7. PROVENTIL [Concomitant]
     Dosage: UNK
     Route: 045
     Dates: start: 20050317
  8. CODEINE [Concomitant]
     Indication: PAIN

REACTIONS (1)
  - Deep vein thrombosis [None]
